FAERS Safety Report 7622355-7 (Version None)
Quarter: 2011Q3

REPORT INFORMATION
  Report Type: 
  Country: None (occurrence: None)
  Receive Date: 20110711
  Receipt Date: 20110701
  Transmission Date: 20111222
  Serious: Yes (Hospitalization, Other)
  Sender: FDA-Public Use
  Company Number: GB-ACCORD-007521

PATIENT
  Age: 65 Year
  Sex: Male

DRUGS (7)
  1. AZATHIOPRINE [Suspect]
     Indication: PRODUCT USED FOR UNKNOWN INDICATION
     Dosage: 150.00-MG-1.0DAYS
     Dates: end: 20080701
  2. PREDNISOLONE [Suspect]
     Indication: RENAL VASCULITIS
     Dosage: 25.00-MG
     Dates: start: 20080901
  3. RITUXIMAB(RITUXIMAB) [Suspect]
     Indication: RENAL VASCULITIS
     Dosage: 375.00-MG/M2-1.00 TIMES PER -1.0WEEKS
     Dates: start: 20090501, end: 20091201
  4. CYCLOPHOSPHAMIDE [Suspect]
     Indication: RENAL VASCULITIS
     Dosage: 200.00-MG-1.0DAYS
     Dates: start: 20071101, end: 20080401
  5. TRIMETHOPRIM + SULFAMETHOXAZOLE [Suspect]
     Indication: PROPHYLAXIS
     Dates: start: 20071101
  6. MYCOPHENOLATE MOFETIL [Suspect]
     Indication: RENAL VASCULITIS
     Dosage: 1.00-G-2.00 TIMES PER-1.0DAYS
  7. METHYLPREDNISOLONE [Concomitant]

REACTIONS (8)
  - VASCULITIS [None]
  - MYELITIS TRANSVERSE [None]
  - DRUG INEFFECTIVE [None]
  - PULMONARY VASCULITIS [None]
  - CUSHING'S SYNDROME [None]
  - LEUKOPENIA [None]
  - OFF LABEL USE [None]
  - LOWER RESPIRATORY TRACT INFECTION [None]
